FAERS Safety Report 14754107 (Version 3)
Quarter: 2021Q2

REPORT INFORMATION
  Report Type: Report from Study
  Country: US (occurrence: US)
  Receive Date: 20180412
  Receipt Date: 20210401
  Transmission Date: 20210716
  Serious: Yes (Hospitalization)
  Sender: FDA-Public Use
  Company Number: US-SHIRE-US201813264

PATIENT
  Sex: Male

DRUGS (1)
  1. VELAGLUCERASE ALFA [Suspect]
     Active Substance: VELAGLUCERASE ALFA
     Indication: GAUCHER^S DISEASE
     Dosage: 35 IU/KG, 1X/2WKS
     Route: 065
     Dates: start: 20080606

REACTIONS (1)
  - Humerus fracture [Recovered/Resolved]

NARRATIVE: CASE EVENT DATE: 20180102
